FAERS Safety Report 12406055 (Version 1)
Quarter: 2016Q2

REPORT INFORMATION
  Report Type: Spontaneous
  Country: TH (occurrence: TH)
  Receive Date: 20160526
  Receipt Date: 20160526
  Transmission Date: 20160815
  Serious: Yes (Death)
  Sender: FDA-Public Use
  Company Number: TH-AMGEN-THASP2016066320

PATIENT
  Age: 69 Year
  Sex: Male
  Weight: 40.9 kg

DRUGS (2)
  1. KYPROLIS [Suspect]
     Active Substance: CARFILZOMIB
     Indication: PLASMA CELL MYELOMA
     Dosage: 60 MG/VIAL, FOR TWO DAYS
     Route: 042
     Dates: start: 20160321, end: 20160330
  2. DEXTROSE. [Concomitant]
     Active Substance: DEXTROSE
     Dosage: UNK

REACTIONS (4)
  - Pneumonia pseudomonal [Fatal]
  - Oral herpes [Fatal]
  - Myocardial infarction [Fatal]
  - Cardiac failure congestive [Fatal]

NARRATIVE: CASE EVENT DATE: 20160330
